FAERS Safety Report 7012708-2 (Version None)
Quarter: 2010Q3

REPORT INFORMATION
  Report Type: 
  Country: None (occurrence: None)
  Receive Date: 20100914
  Receipt Date: 20100319
  Transmission Date: 20110219
  Serious: Yes (Other)
  Sender: FDA-Public Use
  Company Number: 2010009033

PATIENT
  Age: 71 Year
  Sex: Male
  Weight: 73 kg

DRUGS (11)
  1. GLUCOTROL XL [Suspect]
     Indication: DIABETES MELLITUS
     Dosage: 5 MG, 1X/DAY,ORAL
     Route: 048
     Dates: start: 20091201
  2. GLUCOPHAGE [Concomitant]
  3. NORVASC [Concomitant]
  4. ALISKIREN (ALISKIREN) [Concomitant]
  5. PLAVIX [Concomitant]
  6. LISINOPRIL [Concomitant]
  7. NITROGLYCERIN [Concomitant]
  8. NITROGLYCERIN [Concomitant]
  9. TIMOLOL MALEATE (TIMOLOL MALEATE0 [Concomitant]
  10. LUMIGAN [Concomitant]
  11. ACETYLSALICYLIC ACID (ACETYSALICYLIC ACID) [Concomitant]

REACTIONS (5)
  - ABASIA [None]
  - BLOOD GLUCOSE DECREASED [None]
  - DRUG INEFFECTIVE [None]
  - MIDDLE INSOMNIA [None]
  - SOMNOLENCE [None]
